FAERS Safety Report 16745682 (Version 1)
Quarter: 2019Q3

REPORT INFORMATION
  Report Type: Spontaneous
  Country: US (occurrence: US)
  Receive Date: 20190709
  Receipt Date: 20190709
  Transmission Date: 20191005
  Serious: Yes (Other)
  Sender: FDA-Public Use
  Company Number: None

PATIENT
  Age: 73 Year
  Sex: Male
  Weight: 61.23 kg

DRUGS (2)
  1. DORZOLAMIDE HCL [Suspect]
     Active Substance: DORZOLAMIDE HYDROCHLORIDE
     Indication: INTRAOCULAR PRESSURE INCREASED
     Dosage: ?          QUANTITY:22.3 MG MILLIGRAM(S);?
     Route: 047
     Dates: start: 20190613, end: 20190613
  2. RHOPRESSA [Concomitant]
     Active Substance: NETARSUDIL MESYLATE

REACTIONS (1)
  - Eye discharge [None]

NARRATIVE: CASE EVENT DATE: 20190613
